FAERS Safety Report 9840082 (Version 1)
Quarter: 2014Q1

REPORT INFORMATION
  Report Type: Other
  Country: US (occurrence: US)
  Receive Date: 20140124
  Receipt Date: 20140124
  Transmission Date: 20141002
  Serious: Yes (Other)
  Sender: FDA-Public Use
  Company Number: US-SHIRE-ALL1-2014-00326

PATIENT
  Age: 49 Year
  Sex: Female

DRUGS (1)
  1. VPRIV [Suspect]
     Indication: GAUCHER^S DISEASE
     Dosage: 4400 IU (11 VIALS), OTHER (MONTHLY)
     Route: 041
     Dates: start: 20100524

REACTIONS (2)
  - Asthma [Recovering/Resolving]
  - Nasopharyngitis [Unknown]
